FAERS Safety Report 9217322 (Version 1)
Quarter: 2013Q2

REPORT INFORMATION
  Report Type: Report from Study
  Country: RU (occurrence: RU)
  Receive Date: 20130408
  Receipt Date: 20130408
  Transmission Date: 20140414
  Serious: Yes (Hospitalization)
  Sender: FDA-Public Use
  Company Number: RU-AMGEN-UK269309

PATIENT
  Age: 78 Year
  Sex: Male

DRUGS (9)
  1. DENOSUMAB [Suspect]
     Indication: PROSTATE CANCER
     Dosage: UNK UNK, Q4WK
     Route: 058
     Dates: start: 20061107, end: 20080617
  2. BICALUTAMIDE [Concomitant]
     Dosage: 50 MG, QD
     Route: 048
     Dates: start: 20061107
  3. PREDNISOLONE [Concomitant]
     Dosage: 5 MG, BID
     Route: 048
     Dates: start: 20070424
  4. ENALAPRIL [Concomitant]
     Dosage: 2.5 MG, BID
     Route: 048
     Dates: start: 20061020, end: 20070215
  5. DIPYRIDAMOLE [Concomitant]
     Dosage: 150 MG, QD
     Route: 048
     Dates: start: 20070115, end: 20070615
  6. VINPOCETINE [Concomitant]
  7. GLYCINE [Concomitant]
  8. COLECALCIFEROL [Concomitant]
  9. DIABETIC MEDICATION NOS [Concomitant]

REACTIONS (2)
  - Osteomyelitis [Recovered/Resolved]
  - Periodontal disease [Recovered/Resolved with Sequelae]
